FAERS Safety Report 17262865 (Version 5)
Quarter: 2022Q1

REPORT INFORMATION
  Report Type: Report from Study
  Country: US (occurrence: US)
  Receive Date: 20200113
  Receipt Date: 20220103
  Transmission Date: 20220423
  Serious: Yes (Hospitalization, Other)
  Sender: FDA-Public Use
  Company Number: None

PATIENT
  Sex: Female
  Weight: 48.53 kg

DRUGS (1)
  1. GLEEVEC [Suspect]
     Active Substance: IMATINIB MESYLATE
     Indication: Product used for unknown indication
     Dosage: UNK
     Route: 065

REACTIONS (12)
  - Cataract [Unknown]
  - Renal failure [Unknown]
  - Hypokalaemia [Unknown]
  - Gastrointestinal haemorrhage [Unknown]
  - Diabetes mellitus [Unknown]
  - Taste disorder [Unknown]
  - Feeling abnormal [Unknown]
  - Ill-defined disorder [Unknown]
  - Anaemia [Unknown]
  - Angiopathy [Unknown]
  - Fatigue [Unknown]
  - Blood pressure increased [Unknown]
